FAERS Safety Report 6877584-7 (Version None)
Quarter: 2010Q3

REPORT INFORMATION
  Report Type: 
  Country: None (occurrence: None)
  Receive Date: 20100727
  Receipt Date: 20100409
  Transmission Date: 20110219
  Serious: No
  Sender: FDA-Public Use
  Company Number: US-ABBOTT-10P-163-0632340-00

PATIENT
  Sex: Female
  Weight: 63.106 kg

DRUGS (7)
  1. SYNTHROID [Suspect]
     Indication: HYPOTHYROIDISM
     Dates: end: 20100201
  2. SYNTHROID [Suspect]
     Dates: start: 20100305
  3. SYNTHROID [Suspect]
  4. SYNTHROID [Suspect]
  5. FOSAMAX [Suspect]
     Indication: OSTEOPOROSIS PROPHYLAXIS
     Dates: start: 20010101, end: 20091101
  6. FOSAMAX [Suspect]
     Indication: OSTEOPENIA
  7. NORVASC [Concomitant]
     Indication: HYPERTENSION

REACTIONS (4)
  - BLOOD THYROID STIMULATING HORMONE INCREASED [None]
  - CHEST DISCOMFORT [None]
  - FATIGUE [None]
  - HEART RATE INCREASED [None]
